FAERS Safety Report 17146726 (Version 2)
Quarter: 2019Q4

REPORT INFORMATION
  Report Type: Report from Study
  Country: KR (occurrence: KR)
  Receive Date: 20191212
  Receipt Date: 20191216
  Transmission Date: 20200122
  Serious: Yes (Death, Hospitalization)
  Sender: FDA-Public Use
  Company Number: KR-DSJP-DSJ-2019-149479AA

PATIENT

DRUGS (13)
  1. STOGAR [Concomitant]
     Active Substance: LAFUTIDINE
     Indication: GASTRITIS PROPHYLAXIS
     Dosage: 1 DF, BID
     Route: 048
     Dates: start: 20190711
  2. TYLENOL 8HR [Concomitant]
     Active Substance: ACETAMINOPHEN
     Indication: RHEUMATOID ARTHRITIS
     Dosage: 1 DF, TID
     Route: 048
     Dates: start: 20190711, end: 20190712
  3. DIAMICRON [Concomitant]
     Active Substance: GLICLAZIDE
     Indication: TYPE 2 DIABETES MELLITUS
     Dosage: 1 DF, QD
     Route: 048
     Dates: start: 20180810
  4. DICAMAX-D [Concomitant]
     Active Substance: CALCIUM CARBONATE\CHOLECALCIFEROL
     Indication: OSTEOPOROSIS PROPHYLAXIS
     Dosage: 1 DF, QD
     Route: 048
     Dates: start: 20140403
  5. OLMESARTAN AMLODIPINE HYDROCHLOROTHIAZIDE [Suspect]
     Active Substance: AMLODIPINE\HYDROCHLOROTHIAZIDE\OLMESARTAN
     Indication: HYPERTENSION
     Dosage: 1 DF, QD
     Route: 048
     Dates: start: 20190222, end: 20190603
  6. CELEBREX [Concomitant]
     Active Substance: CELECOXIB
     Indication: RHEUMATOID ARTHRITIS
     Dosage: 1 DF, QD
     Route: 048
     Dates: start: 20150504, end: 20190815
  7. METHYLON                           /00049601/ [Concomitant]
     Active Substance: METHYLPREDNISOLONE
     Indication: RHEUMATOID ARTHRITIS
     Dosage: 0.5 DF, BID
     Route: 048
     Dates: start: 20170424, end: 20190609
  8. ROVELITO [Concomitant]
     Indication: HYPERTENSION
     Dosage: 1 DF, QD
     Route: 048
     Dates: start: 20180803, end: 20190221
  9. TRAJENTA DUO [Concomitant]
     Active Substance: LINAGLIPTIN\METFORMIN HYDROCHLORIDE
     Indication: TYPE 2 DIABETES MELLITUS
     Dosage: 1 DF, BID
     Route: 048
     Dates: start: 20180803
  10. JOINS [Concomitant]
     Indication: GASTRITIS PROPHYLAXIS
     Dosage: 1 DF, BID
     Route: 048
     Dates: start: 20180201, end: 20190815
  11. LIPITOR [Concomitant]
     Active Substance: ATORVASTATIN CALCIUM
     Indication: DYSLIPIDAEMIA
     Dosage: 1 DF, QD
     Route: 048
     Dates: start: 20190222
  12. MUCOSTA [Concomitant]
     Active Substance: REBAMIPIDE
     Indication: GASTRITIS PROPHYLAXIS
     Dosage: 1 DF, BID
     Route: 048
     Dates: start: 20091113, end: 20190710
  13. OLMESARTAN AMLODIPINE HYDROCHLOROTHIAZIDE [Suspect]
     Active Substance: AMLODIPINE\HYDROCHLOROTHIAZIDE\OLMESARTAN
     Dosage: 1 DF, QD
     Route: 048
     Dates: start: 20190607

REACTIONS (4)
  - Death [Fatal]
  - Cataract [Recovered/Resolved]
  - Hyponatraemia [Recovered/Resolved]
  - Asthenia [Recovered/Resolved]

NARRATIVE: CASE EVENT DATE: 20190531
